FAERS Safety Report 6780070-6 (Version None)
Quarter: 2010Q2

REPORT INFORMATION
  Report Type: 
  Country: None (occurrence: None)
  Receive Date: 20100618
  Receipt Date: 20100610
  Transmission Date: 20101027
  Serious: Yes (Other)
  Sender: FDA-Public Use
  Company Number: US-PFIZER INC-2010073639

PATIENT

DRUGS (1)
  1. LIPITOR [Suspect]
     Indication: ACUTE MYOCARDIAL INFARCTION
     Dosage: 80 MG, 1X/DAY
     Route: 048
     Dates: start: 20100219

REACTIONS (1)
  - DEAFNESS [None]
